FAERS Safety Report 16020640 (Version 1)
Quarter: 2019Q1

REPORT INFORMATION
  Report Type: Spontaneous
  Country: US (occurrence: US)
  Receive Date: 20190301
  Receipt Date: 20190301
  Transmission Date: 20190418
  Serious: No
  Sender: FDA-Public Use
  Company Number: US-GLAXOSMITHKLINE-US2019035126

PATIENT
  Sex: Female

DRUGS (1)
  1. LAMOTRIGINE. [Suspect]
     Active Substance: LAMOTRIGINE
     Indication: BIPOLAR DISORDER
     Dosage: 12.5 MG, QD
     Route: 048
     Dates: start: 2017, end: 2017

REACTIONS (3)
  - Ill-defined disorder [Unknown]
  - Gluten sensitivity [Unknown]
  - Headache [Unknown]

NARRATIVE: CASE EVENT DATE: 2017
